FAERS Safety Report 6496277-1 (Version None)
Quarter: 2009Q4

REPORT INFORMATION
  Report Type: 
  Country: None (occurrence: None)
  Receive Date: 20091214
  Receipt Date: 20091202
  Transmission Date: 20100525
  Serious: No
  Sender: FDA-Public Use
  Company Number: CA-ELI_LILLY_AND_COMPANY-CA200909005785

PATIENT
  Age: 33 Year
  Sex: Male

DRUGS (1)
  1. ZYPREXA [Suspect]
     Indication: BACK PAIN
     Dosage: 20 MG, DAILY (1/D)
     Dates: start: 20050101

REACTIONS (5)
  - ALCOHOL ABUSE [None]
  - HEPATIC STEATOSIS [None]
  - METABOLIC SYNDROME [None]
  - OFF LABEL USE [None]
  - WEIGHT INCREASED [None]
